FAERS Safety Report 17718330 (Version 1)
Quarter: 2020Q2

REPORT INFORMATION
  Report Type: Report from Study
  Country: US (occurrence: US)
  Receive Date: 20200428
  Receipt Date: 20200428
  Transmission Date: 20200714
  Serious: Yes (Death)
  Sender: FDA-Public Use
  Company Number: US-ROCHE-2564407

PATIENT
  Sex: Female

DRUGS (4)
  1. OMEPRAZOLE. [Concomitant]
     Active Substance: OMEPRAZOLE
     Route: 065
  2. OCREVUS [Suspect]
     Active Substance: OCRELIZUMAB
     Route: 042
     Dates: start: 20191015
  3. OCREVUS [Suspect]
     Active Substance: OCRELIZUMAB
     Indication: RELAPSING MULTIPLE SCLEROSIS
     Route: 042
     Dates: start: 20190417
  4. OCREVUS [Suspect]
     Active Substance: OCRELIZUMAB
     Dosage: IN NOV/2019, IT WAS CONFIRMED THAT, SHE HAD RECEIVED THE LAST DOSE OF OCRELIZUMAB
     Route: 042
     Dates: start: 20190403

REACTIONS (1)
  - Infection [Fatal]
